FAERS Safety Report 5719087-9 (Version None)
Quarter: 2008Q2

REPORT INFORMATION
  Report Type: 
  Country: None (occurrence: None)
  Receive Date: 20080423
  Receipt Date: 20080418
  Transmission Date: 20081010
  Serious: Yes (Hospitalization)
  Sender: FDA-Public Use
  Company Number: 2008SP007335

PATIENT
  Age: 60 Year
  Sex: Male

DRUGS (10)
  1. VIRAFERON [Suspect]
     Indication: HEPATITIS C
     Dates: start: 20071113, end: 20080328
  2. RIBAVIRIN [Suspect]
     Indication: HEPATITIS C
  3. LAMICTAL [Suspect]
     Indication: EPILEPSY
     Dosage: PO
     Route: 048
     Dates: start: 20080115, end: 20080331
  4. LAROXYL [Concomitant]
  5. KEPPRA [Concomitant]
  6. DEXERYL [Concomitant]
  7. ATARAX [Concomitant]
  8. NERISONE [Concomitant]
  9. AERIUS [Concomitant]
  10. TRIDESONIT [Concomitant]

REACTIONS (10)
  - ECZEMA [None]
  - ERYTHEMA [None]
  - GLOSSODYNIA [None]
  - HYPOTHYROIDISM [None]
  - MOUTH ULCERATION [None]
  - MUSCULAR WEAKNESS [None]
  - PALATAL DISORDER [None]
  - PRURITUS [None]
  - RASH PAPULAR [None]
  - SEBORRHOEIC KERATOSIS [None]
